FAERS Safety Report 12943257 (Version 1)
Quarter: 2016Q4

REPORT INFORMATION
  Report Type: Spontaneous
  Country: US (occurrence: US)
  Receive Date: 20161115
  Receipt Date: 20161115
  Transmission Date: 20170207
  Serious: No
  Sender: FDA-Public Use
  Company Number: US-GLAXOSMITHKLINE-US2016166377

PATIENT
  Sex: Female

DRUGS (1)
  1. FLONASE [Suspect]
     Active Substance: FLUTICASONE PROPIONATE
     Indication: NASAL CONGESTION
     Dosage: UNK
     Dates: start: 20161107

REACTIONS (3)
  - Vision blurred [Recovering/Resolving]
  - Paranasal sinus discomfort [Unknown]
  - Eye opacity [Recovering/Resolving]

NARRATIVE: CASE EVENT DATE: 20161109
